FAERS Safety Report 4900196-9 (Version None)
Quarter: 2006Q1

REPORT INFORMATION
  Report Type: 
  Country: None (occurrence: None)
  Receive Date: 20060203
  Receipt Date: 20050825
  Transmission Date: 20060701
  Serious: Yes (Hospitalization, Disabling)
  Sender: FDA-Public Use
  Company Number: A01200505867

PATIENT
  Age: 82 Year
  Sex: Female

DRUGS (12)
  1. ARIXTRA [Suspect]
     Dosage: 2.5MG PER DAY
     Route: 058
     Dates: start: 20050801
  2. LASIX [Concomitant]
  3. COREG [Concomitant]
  4. ZOFRAN [Concomitant]
  5. LOTENSIN [Concomitant]
  6. ENALAPRIL [Concomitant]
  7. TAMOXIFEN CITRATE [Concomitant]
  8. MORPHINE [Concomitant]
  9. CEPHALOSPORIN [Concomitant]
  10. SUDAFED 12 HOUR [Concomitant]
  11. TYLENOL [Concomitant]
  12. TRANSFUSION [Concomitant]

REACTIONS (1)
  - INCISION SITE HAEMORRHAGE [None]
